FAERS Safety Report 5043324-X (Version None)
Quarter: 2006Q3

REPORT INFORMATION
  Report Type: 
  Country: None (occurrence: None)
  Receive Date: 20060703
  Receipt Date: 20060703
  Transmission Date: 20061208
  Serious: Yes (Other)
  Sender: FDA-Public Use
  Company Number: None

PATIENT
  Age: 56 Year
  Sex: Male
  Weight: 125.6 kg

DRUGS (19)
  1. MIRTAZAPINE [Suspect]
  2. CHLORTHALIDONE [Concomitant]
  3. ASPIRIN [Concomitant]
  4. VARDENAFIL HCL [Concomitant]
  5. OXYCODONE HCL [Concomitant]
  6. RANITIDINE [Concomitant]
  7. SIMVASTATIN [Concomitant]
  8. ACETAMINOPHEN [Concomitant]
  9. GABAPENTIN [Concomitant]
  10. OMEPRAZOLE [Concomitant]
  11. MIRTAZAPINE [Concomitant]
  12. ALPRAZOLAM [Concomitant]
  13. BUSPIRONE HCL [Concomitant]
  14. UREA [Concomitant]
  15. MORPHINE SULFATE [Concomitant]
  16. TRAMADOL HCL [Concomitant]
  17. CITALOPRAM HYDROBROMIDE [Concomitant]
  18. TERBINAFINE HYDROCHLORIDE CREAM 1% [Concomitant]
  19. CAPBAICIN CREAM [Concomitant]

REACTIONS (1)
  - DRY MOUTH [None]
